FAERS Safety Report 25230070 (Version 2)
Quarter: 2025Q2

REPORT INFORMATION
  Report Type: Spontaneous
  Country: US (occurrence: US)
  Receive Date: 20250423
  Receipt Date: 20250502
  Transmission Date: 20250717
  Serious: Yes (Other)
  Sender: TEVA
  Company Number: US-TEVA-VS-3323983

PATIENT
  Age: 39 Year
  Sex: Female

DRUGS (2)
  1. TRAZODONE [Suspect]
     Active Substance: TRAZODONE HYDROCHLORIDE
     Indication: Persistent genital arousal disorder
     Route: 065
  2. DEXAMETHASONE [Suspect]
     Active Substance: DEXAMETHASONE
     Indication: Persistent genital arousal disorder
     Route: 008

REACTIONS (4)
  - Persistent genital arousal disorder [Recovering/Resolving]
  - Drug ineffective [Unknown]
  - Genital dysaesthesia [Recovering/Resolving]
  - Paradoxical drug reaction [Recovering/Resolving]
